FAERS Safety Report 6971042-7 (Version None)
Quarter: 2010Q3

REPORT INFORMATION
  Report Type: 
  Country: None (occurrence: None)
  Receive Date: 20100908
  Receipt Date: 20100827
  Transmission Date: 20110219
  Serious: Yes (Hospitalization, Other)
  Sender: FDA-Public Use
  Company Number: US-PFIZER INC-2010083545

PATIENT
  Sex: Female

DRUGS (4)
  1. CHANTIX [Suspect]
     Indication: SMOKING CESSATION THERAPY
     Dosage: STARTER PACK 0.5 MG TO 1 MG AND CONTINUING PACK 1 MG TABLET
     Route: 048
     Dates: start: 20070118, end: 20070501
  2. RESTORIL [Concomitant]
     Indication: INSOMNIA
     Dosage: UNK
  3. RENOVA [Concomitant]
     Indication: SKIN DISORDER
     Dosage: UNK
  4. PERCOCET [Concomitant]
     Indication: PAIN
     Dosage: UNK
     Dates: start: 20040101, end: 20100101

REACTIONS (8)
  - ANXIETY [None]
  - DEPRESSION [None]
  - FLASHBACK [None]
  - INSOMNIA [None]
  - INTENTIONAL OVERDOSE [None]
  - NIGHTMARE [None]
  - PANIC ATTACK [None]
  - SUICIDE ATTEMPT [None]
